FAERS Safety Report 6993115-5 (Version None)
Quarter: 2010Q3

REPORT INFORMATION
  Report Type: 
  Country: None (occurrence: None)
  Receive Date: 20100917
  Receipt Date: 20100125
  Transmission Date: 20110219
  Serious: No
  Sender: FDA-Public Use
  Company Number: US-ASTRAZENECA-2010SE03315

PATIENT
  Age: 34 Year
  Sex: Female
  Weight: 95.7 kg

DRUGS (5)
  1. SEROQUEL [Suspect]
     Indication: ANXIETY
     Route: 048
     Dates: start: 20051101, end: 20071101
  2. SEROQUEL [Suspect]
     Indication: PANIC ATTACK
     Route: 048
     Dates: start: 20051101, end: 20071101
  3. SEROQUEL [Suspect]
     Route: 048
     Dates: start: 20051101, end: 20071101
  4. KLONOPIN [Concomitant]
  5. XANAX [Concomitant]

REACTIONS (2)
  - DRUG DOSE OMISSION [None]
  - INSOMNIA [None]
